FAERS Safety Report 4393024-4 (Version None)
Quarter: 2004Q3

REPORT INFORMATION
  Report Type: 
  Country: None (occurrence: None)
  Receive Date: 20040708
  Receipt Date: 20040625
  Transmission Date: 20050211
  Serious: Yes (Life-Threatening)
  Sender: FDA-Public Use
  Company Number: JP-GLAXOSMITHKLINE-B0337263A

PATIENT
  Age: 71 Year
  Sex: Male

DRUGS (4)
  1. VALTREX [Suspect]
     Indication: HERPES ZOSTER
     Dosage: 1000MG PER DAY
     Route: 048
     Dates: start: 20040613, end: 20040615
  2. ACTIDAS [Concomitant]
     Indication: HERPES ZOSTER
     Route: 042
     Dates: start: 20040611, end: 20040611
  3. PREDONINE [Concomitant]
     Route: 048
  4. LAC B [Concomitant]
     Route: 048

REACTIONS (1)
  - RENAL FAILURE CHRONIC [None]
